FAERS Safety Report 11341139 (Version 1)
Quarter: 2015Q3

REPORT INFORMATION
  Report Type: Spontaneous
  Country: US (occurrence: None)
  Receive Date: 20150803
  Receipt Date: 20150803
  Transmission Date: 20151125
  Serious: Yes (Disabling)
  Sender: FDA-Public Use
  Company Number: None

PATIENT
  Age: 58 Year
  Sex: Female
  Weight: 79.38 kg

DRUGS (13)
  1. DULOXETINE 90 MG LUPIN [Suspect]
     Active Substance: DULOXETINE
     Indication: DEPRESSION
     Dosage: 3 PILLS
     Route: 048
     Dates: start: 20070831, end: 20150801
  2. LITHIUM. [Concomitant]
     Active Substance: LITHIUM
  3. BIOTIN [Concomitant]
     Active Substance: BIOTIN
  4. DULOXETINE 90 MG LUPIN [Suspect]
     Active Substance: DULOXETINE
     Indication: BIPOLAR II DISORDER
     Dosage: 3 PILLS
     Route: 048
     Dates: start: 20070831, end: 20150801
  5. PSYLLIUM HUSK [Concomitant]
     Active Substance: PSYLLIUM HUSK
  6. GABA [Concomitant]
     Active Substance: .GAMMA.-AMINOBUTYRIC ACID
  7. CYMBALTA [Concomitant]
     Active Substance: DULOXETINE HYDROCHLORIDE
  8. LAMICTAL [Concomitant]
     Active Substance: LAMOTRIGINE
  9. D [Concomitant]
  10. CINNAMON. [Concomitant]
     Active Substance: CINNAMON
  11. RITALIN [Concomitant]
     Active Substance: METHYLPHENIDATE HYDROCHLORIDE
  12. CLARINEX [Concomitant]
     Active Substance: DESLORATADINE
  13. PROBIOTICS [Concomitant]
     Active Substance: PROBIOTICS NOS

REACTIONS (7)
  - Hyperhidrosis [None]
  - Amnesia [None]
  - Impaired work ability [None]
  - Cognitive disorder [None]
  - Dehydration [None]
  - Activities of daily living impaired [None]
  - Heat exhaustion [None]

NARRATIVE: CASE EVENT DATE: 20150729
